FAERS Safety Report 7799883-7 (Version None)
Quarter: 2011Q4

REPORT INFORMATION
  Report Type: 
  Country: None (occurrence: None)
  Receive Date: 20111006
  Receipt Date: 20110927
  Transmission Date: 20120403
  Serious: Yes (Other)
  Sender: FDA-Public Use
  Company Number: US-ASTRAZENECA-2011SE58369

PATIENT
  Age: 85 Year
  Sex: Female

DRUGS (1)
  1. PULMICORT [Suspect]
     Route: 055

REACTIONS (2)
  - INSOMNIA [None]
  - BONE NEOPLASM MALIGNANT [None]
